FAERS Safety Report 9735803 (Version 1)
Quarter: 2013Q4

REPORT INFORMATION
  Report Type: Spontaneous
  Country: US (occurrence: None)
  Receive Date: 20131204
  Receipt Date: 20131204
  Transmission Date: 20140711
  Serious: Yes (Other)
  Sender: FDA-Public Use
  Company Number: 2043197

PATIENT
  Sex: Male

DRUGS (3)
  1. MANNITOL [Suspect]
     Indication: DEHYDRATION
     Dosage: 8 G/M^2 BOLUS
     Route: 040
  2. MANNITOL [Suspect]
     Indication: DIURETIC THERAPY
     Dosage: 8 G/M^2 BOLUS
     Route: 040
  3. (CISPLATIN) [Concomitant]

REACTIONS (1)
  - Anaphylactic reaction [None]
